FAERS Safety Report 8804492 (Version 2)
Quarter: 2015Q3

REPORT INFORMATION
  Report Type: Report from Study
  Country: US (occurrence: US)
  Receive Date: 20120924
  Receipt Date: 20150817
  Transmission Date: 20151125
  Serious: Yes (Death, Other)
  Sender: FDA-Public Use
  Company Number: US-ROCHE-1092246

PATIENT
  Sex: Female

DRUGS (16)
  1. AVASTIN [Suspect]
     Active Substance: BEVACIZUMAB
     Indication: MALIGNANT NEOPLASM OF UTERINE ADNEXA
     Route: 042
  2. DECADRON [Concomitant]
     Active Substance: DEXAMETHASONE
     Route: 065
  3. AVASTIN [Suspect]
     Active Substance: BEVACIZUMAB
     Indication: BREAST CANCER
     Route: 042
  4. TAXOTERE [Concomitant]
     Active Substance: DOCETAXEL
     Route: 042
  5. BENADRYL [Concomitant]
     Active Substance: DIPHENHYDRAMINE HYDROCHLORIDE
     Route: 065
  6. TYLENOL [Concomitant]
     Active Substance: ACETAMINOPHEN
     Route: 065
  7. COUMADIN [Concomitant]
     Active Substance: WARFARIN SODIUM
     Indication: PROPHYLAXIS
     Route: 048
  8. NAVELBINE [Concomitant]
     Active Substance: VINORELBINE TARTRATE
     Route: 065
  9. GEMZAR [Concomitant]
     Active Substance: GEMCITABINE HYDROCHLORIDE
     Route: 065
  10. ASPIRIN. [Concomitant]
     Active Substance: ASPIRIN
     Indication: PROPHYLAXIS
     Route: 048
  11. CARBOPLATIN. [Concomitant]
     Active Substance: CARBOPLATIN
     Route: 042
  12. ZOFRAN [Concomitant]
     Active Substance: ONDANSETRON HYDROCHLORIDE
     Route: 033
  13. TAGAMET [Concomitant]
     Active Substance: CIMETIDINE
     Route: 065
  14. ARANESP [Concomitant]
     Active Substance: DARBEPOETIN ALFA
     Route: 065
  15. AVASTIN [Suspect]
     Active Substance: BEVACIZUMAB
     Indication: OVARIAN CANCER
     Route: 042
     Dates: start: 20040805
  16. NEULASTA [Concomitant]
     Active Substance: PEGFILGRASTIM
     Route: 065

REACTIONS (19)
  - Death [Fatal]
  - Myalgia [Unknown]
  - Muscle spasms [Unknown]
  - Arthralgia [Unknown]
  - Rhinorrhoea [Unknown]
  - Muscular weakness [Unknown]
  - Hyperhidrosis [Unknown]
  - Depression [Unknown]
  - Alopecia [Unknown]
  - Pain [Unknown]
  - Headache [Unknown]
  - Stomatitis [Unknown]
  - Ocular hyperaemia [Unknown]
  - Anxiety [Unknown]
  - Gingival bleeding [Unknown]
  - Hot flush [Unknown]
  - Nausea [Unknown]
  - Off label use [Unknown]
  - Epistaxis [Unknown]
